FAERS Safety Report 12347898 (Version 2)
Quarter: 2016Q2

REPORT INFORMATION
  Report Type: Report from Study
  Country: KR (occurrence: KR)
  Receive Date: 20160509
  Receipt Date: 20160516
  Transmission Date: 20160815
  Serious: Yes (Death, Hospitalization)
  Sender: FDA-Public Use
  Company Number: PHHY2016KR063110

PATIENT
  Age: 66 Year
  Sex: Male
  Weight: 75 kg

DRUGS (1)
  1. VOTRIENT [Suspect]
     Active Substance: PAZOPANIB HYDROCHLORIDE
     Indication: RENAL CELL CARCINOMA
     Dosage: 800 MG, QD
     Route: 048
     Dates: start: 20160201, end: 20160502

REACTIONS (8)
  - Nausea [Fatal]
  - Decreased appetite [Fatal]
  - Abdominal pain [Fatal]
  - Dyspnoea [Fatal]
  - Diaphragmatic hernia [Fatal]
  - Abdominal distension [Fatal]
  - Vomiting [Fatal]
  - Chest pain [Fatal]

NARRATIVE: CASE EVENT DATE: 20160422
